FAERS Safety Report 8036970-2 (Version None)
Quarter: 2012Q1

REPORT INFORMATION
  Report Type: 
  Country: None (occurrence: None)
  Receive Date: 20120111
  Receipt Date: 20120109
  Transmission Date: 20120608
  Serious: No
  Sender: FDA-Public Use
  Company Number: US-PFIZER INC-2012006515

PATIENT
  Sex: Male
  Weight: 122 kg

DRUGS (1)
  1. CHANTIX [Suspect]
     Indication: SMOKING CESSATION THERAPY
     Dosage: UNK
     Route: 048
     Dates: start: 20120102, end: 20120108

REACTIONS (3)
  - INSOMNIA [None]
  - ANXIETY [None]
  - NIGHTMARE [None]
